FAERS Safety Report 7518825-2 (Version None)
Quarter: 2011Q2

REPORT INFORMATION
  Report Type: 
  Country: None (occurrence: None)
  Receive Date: 20110602
  Receipt Date: 20110525
  Transmission Date: 20111010
  Serious: Yes (Other)
  Sender: FDA-Public Use
  Company Number: US-ASTRAZENECA-2011SE32272

PATIENT
  Age: 60 Year
  Sex: Female

DRUGS (1)
  1. NEXIUM [Suspect]
     Route: 048
     Dates: start: 20010101

REACTIONS (3)
  - UPPER LIMB FRACTURE [None]
  - OSTEOPOROSIS [None]
  - SPINAL DISORDER [None]
